FAERS Safety Report 14764319 (Version 1)
Quarter: 2018Q2

REPORT INFORMATION
  Report Type: Spontaneous
  Country: US (occurrence: US)
  Receive Date: 20180416
  Receipt Date: 20180416
  Transmission Date: 20180711
  Serious: Yes (Other)
  Sender: FDA-Public Use
  Company Number: US-IMPAX LABORATORIES, INC-2018-IPXL-01189

PATIENT
  Age: 17 Year
  Sex: Male

DRUGS (2)
  1. DEXEDRINE SPANSULE [Suspect]
     Active Substance: DEXTROAMPHETAMINE SULFATE
     Indication: INTENTIONAL OVERDOSE
     Dosage: 10 MG, 15 TO 25 CAPSULES
     Route: 065
  2. CLONIDINE HYDROCHLORIDE. [Suspect]
     Active Substance: CLONIDINE HYDROCHLORIDE
     Indication: INTENTIONAL OVERDOSE
     Dosage: 0.1 MG, 15 TO 25 TABLETS
     Route: 065

REACTIONS (5)
  - Bradycardia [Recovered/Resolved]
  - Hypertensive emergency [Recovered/Resolved]
  - Intentional overdose [Recovered/Resolved]
  - Posterior reversible encephalopathy syndrome [Recovered/Resolved]
  - Intentional self-injury [Unknown]
